FAERS Safety Report 11975934 (Version 2)
Quarter: 2016Q1

REPORT INFORMATION
  Report Type: Spontaneous
  Country: FR (occurrence: FR)
  Receive Date: 20160129
  Receipt Date: 20160212
  Transmission Date: 20160526
  Serious: Yes (Hospitalization)
  Sender: FDA-Public Use
  Company Number: FR-ROCHE-1701462

PATIENT
  Age: 63 Year
  Sex: Male

DRUGS (7)
  1. BACTRIM [Suspect]
     Active Substance: SULFAMETHOXAZOLE\TRIMETHOPRIM
     Indication: PROSTATITIS
     Route: 048
     Dates: start: 20151225, end: 20160102
  2. MOVICOL [Concomitant]
     Active Substance: POLYETHYLENE GLYCOL 3350\POTASSIUM CHLORIDE\SODIUM BICARBONATE\SODIUM CHLORIDE
  3. ROCEPHINE [Suspect]
     Active Substance: CEFTRIAXONE SODIUM
     Indication: PROSTATITIS
     Route: 030
     Dates: start: 20151222, end: 20151225
  4. XATRAL [Concomitant]
     Active Substance: ALFUZOSIN
  5. DAFLON [Concomitant]
     Active Substance: DIOSMIN\HESPERIDIN
  6. PERMIXON [Concomitant]
     Active Substance: SAW PALMETTO
  7. NORMACOL [Concomitant]
     Active Substance: KARAYA GUM

REACTIONS (3)
  - Paraesthesia [Recovering/Resolving]
  - Neuropathy peripheral [Recovering/Resolving]
  - Guillain-Barre syndrome [Recovering/Resolving]

NARRATIVE: CASE EVENT DATE: 201601
